FAERS Safety Report 5167012-4 (Version None)
Quarter: 2006Q4

REPORT INFORMATION
  Report Type: 
  Country: None (occurrence: None)
  Receive Date: 20061207
  Receipt Date: 20060918
  Transmission Date: 20070319
  Serious: No
  Sender: FDA-Public Use
  Company Number: 2006PK02522

PATIENT
  Age: 37 Year
  Sex: Female
  Weight: 52 kg

DRUGS (9)
  1. SEROQUEL [Suspect]
     Indication: SCHIZOPHRENIA, PARANOID TYPE
     Route: 048
     Dates: start: 20060420, end: 20060421
  2. SEROQUEL [Suspect]
     Route: 048
     Dates: start: 20060422, end: 20060422
  3. SEROQUEL [Suspect]
     Route: 048
     Dates: start: 20060423, end: 20060424
  4. SEROQUEL [Suspect]
     Route: 048
  5. SEROQUEL [Suspect]
     Route: 048
  6. SEROQUEL [Suspect]
     Route: 048
  7. VENLAFAXINE HCL [Concomitant]
     Indication: DEPRESSIVE SYMPTOM
  8. VENLAFAXINE HCL [Concomitant]
     Dates: start: 20060517
  9. VENLAFAXINE HCL [Concomitant]
     Dates: start: 20060720

REACTIONS (2)
  - LEUKOPENIA [None]
  - SEDATION [None]
